FAERS Safety Report 23774811 (Version 3)
Quarter: 2024Q2

REPORT INFORMATION
  Report Type: Spontaneous
  Country: US (occurrence: US)
  Receive Date: 20240423
  Receipt Date: 20240516
  Transmission Date: 20240716
  Serious: Yes (Other)
  Sender: FDA-Public Use
  Company Number: US-PFIZER INC-PV202400053100

PATIENT
  Age: 51 Year
  Sex: Female

DRUGS (11)
  1. IBRANCE [Suspect]
     Active Substance: PALBOCICLIB
     Indication: Breast cancer female
     Dosage: 1 125 MG TABLET ONCE DAILY FOR 21 DAYS, THEN OFF  FOR 7 DAYS. REPEAT.
     Route: 048
     Dates: start: 20240215
  2. AMPHETAMINE [Concomitant]
     Active Substance: AMPHETAMINE
     Dosage: UNK
  3. ANASTROZOLE [Concomitant]
     Active Substance: ANASTROZOLE
     Dosage: UNK
  4. CITALOPRAM [Concomitant]
     Active Substance: CITALOPRAM\CITALOPRAM HYDROBROMIDE
     Dosage: UNK
  5. DOXEPIN HCL [Concomitant]
     Active Substance: DOXEPIN HYDROCHLORIDE
     Dosage: UNK
  6. LEVOCETIRIZINE DIHYDROCHLORIDE [Concomitant]
     Active Substance: LEVOCETIRIZINE DIHYDROCHLORIDE
     Dosage: UNK
  7. MONTELUKAST [Concomitant]
     Active Substance: MONTELUKAST SODIUM
     Dosage: UNK
  8. PANTOPRAZOLE [Concomitant]
     Active Substance: PANTOPRAZOLE
     Dosage: UNK
  9. TAMOXIFEN [Concomitant]
     Active Substance: TAMOXIFEN
     Dosage: UNK
  10. TRIAMTERENE AND HYDROCHLOROTHIAZIDE [Concomitant]
     Active Substance: HYDROCHLOROTHIAZIDE\TRIAMTERENE
     Dosage: UNK (37.5-25)
  11. WEGOVY [Concomitant]
     Active Substance: SEMAGLUTIDE
     Dosage: UNK

REACTIONS (12)
  - Neutropenia [Unknown]
  - Leukopenia [Unknown]
  - Constipation [Unknown]
  - Decreased appetite [Unknown]
  - Dry skin [Unknown]
  - Fatigue [Unknown]
  - Headache [Unknown]
  - White blood cell count decreased [Unknown]
  - Nausea [Unknown]
  - Anaemia [Unknown]
  - Diarrhoea [Unknown]
  - Red blood cell count decreased [Unknown]
